FAERS Safety Report 6419415-5 (Version None)
Quarter: 2009Q4

REPORT INFORMATION
  Report Type: 
  Country: None (occurrence: None)
  Receive Date: 20091027
  Receipt Date: 20091005
  Transmission Date: 20100525
  Serious: Yes (Hospitalization)
  Sender: FDA-Public Use
  Company Number: DE-2009-1441

PATIENT
  Age: 67 Year
  Sex: Male
  Weight: 80 kg

DRUGS (4)
  1. NAVELBINE [Suspect]
     Indication: NON-SMALL CELL LUNG CANCER
     Dosage: MG/M2 IV
     Route: 042
     Dates: start: 20051011, end: 20051116
  2. NAVELBINE [Suspect]
     Indication: NON-SMALL CELL LUNG CANCER
  3. CISPLATIN [Suspect]
     Indication: NON-SMALL CELL LUNG CANCER
     Dosage: MG/M2 IV
     Route: 042
     Dates: start: 20050801, end: 20051109
  4. PACLITAXEL [Suspect]
     Indication: NON-SMALL CELL LUNG CANCER
     Dosage: 175 MG/M2
     Dates: start: 20050801, end: 20050920

REACTIONS (1)
  - PULMONARY EMBOLISM [None]
